FAERS Safety Report 4978299-2 (Version None)
Quarter: 2006Q2

REPORT INFORMATION
  Report Type: 
  Country: None (occurrence: None)
  Receive Date: 20060417
  Receipt Date: 20060406
  Transmission Date: 20061013
  Serious: Yes (Hospitalization)
  Sender: FDA-Public Use
  Company Number: 223843

PATIENT
  Age: 78 Year
  Sex: Male
  Weight: 59 kg

DRUGS (5)
  1. AVASTIN [Suspect]
     Indication: NON-SMALL CELL LUNG CANCER
     Dosage: 870 MG, Q3W, INTRAVENOUS
     Route: 042
     Dates: start: 20060116, end: 20060305
  2. TAXOL [Concomitant]
  3. CARBOPLATIN [Concomitant]
  4. ULTRAM [Concomitant]
  5. PREVACID [Concomitant]

REACTIONS (2)
  - DIVERTICULAR PERFORATION [None]
  - INTESTINAL PERFORATION [None]
